FAERS Safety Report 11989553 (Version 2)
Quarter: 2016Q1

REPORT INFORMATION
  Report Type: Spontaneous
  Country: NL (occurrence: NL)
  Receive Date: 20160202
  Receipt Date: 20160203
  Transmission Date: 20160526
  Serious: Yes (Hospitalization)
  Sender: FDA-Public Use
  Company Number: NL-TEVA-630353ISR

PATIENT
  Sex: Female

DRUGS (5)
  1. FOSTER [Suspect]
     Active Substance: BECLOMETHASONE\FORMOTEROL
  2. SPIRIVA [Suspect]
     Active Substance: TIOTROPIUM BROMIDE MONOHYDRATE
  3. MONTELUKAST [Suspect]
     Active Substance: MONTELUKAST SODIUM
     Dosage: FOR THE NIGHT
  4. SALBUTAMOL [Suspect]
     Active Substance: ALBUTEROL
  5. ATROVENT [Suspect]
     Active Substance: IPRATROPIUM BROMIDE

REACTIONS (4)
  - Chest discomfort [Unknown]
  - Drug ineffective [Unknown]
  - Cough [Unknown]
  - Dyspnoea [Unknown]

NARRATIVE: CASE EVENT DATE: 2015
